FAERS Safety Report 4633248-1 (Version None)
Quarter: 2005Q2

REPORT INFORMATION
  Report Type: 
  Country: None (occurrence: None)
  Receive Date: 20050408
  Receipt Date: 20050330
  Transmission Date: 20051028
  Serious: Yes (Hospitalization)
  Sender: FDA-Public Use
  Company Number: 2005051107

PATIENT
  Age: 71 Year
  Sex: Female

DRUGS (2)
  1. AROMASIN [Suspect]
     Indication: BREAST CANCER
     Dosage: 1 DOSE FORM (EVERY DAY), ORAL
     Route: 048
     Dates: start: 20040504, end: 20041206
  2. ANASTROZOLE (ANASTROZOLE) [Suspect]
     Indication: BREAST CANCER
     Dosage: 1 DOSE FORM (EVERY DAY), ORAL
     Route: 048
     Dates: start: 20040202, end: 20040504

REACTIONS (5)
  - ARTERIAL DISORDER [None]
  - DIFFICULTY IN WALKING [None]
  - LYMPHOEDEMA [None]
  - MYALGIA [None]
  - OSTEOARTHRITIS [None]
